APPROVED DRUG PRODUCT: CALCIUM ACETATE
Active Ingredient: CALCIUM ACETATE
Strength: 667MG
Dosage Form/Route: CAPSULE;ORAL
Application: A091312 | Product #001 | TE Code: AB
Applicant: CHARTWELL RX SCIENCES LLC
Approved: Jun 1, 2012 | RLD: No | RS: No | Type: RX